FAERS Safety Report 6217060-8 (Version None)
Quarter: 2009Q2

REPORT INFORMATION
  Report Type: 
  Country: None (occurrence: None)
  Receive Date: 20090606
  Receipt Date: 20090525
  Transmission Date: 20091009
  Serious: Yes (Death, Life-Threatening, Hospitalization)
  Sender: FDA-Public Use
  Company Number: FR-PFIZER INC-2009217526

PATIENT
  Age: 62 Year

DRUGS (5)
  1. ZOLOFT [Suspect]
     Indication: DEPRESSION
     Dosage: UNK
     Route: 048
     Dates: start: 20050505, end: 20090314
  2. ARAVA [Suspect]
     Indication: RHEUMATOID ARTHRITIS
     Dosage: 10 G, UNK
     Route: 048
     Dates: start: 20080303, end: 20090314
  3. LOPRESSOR [Suspect]
     Indication: HYPERTENSION
     Dosage: UNK
     Route: 048
     Dates: start: 20010101, end: 20090314
  4. LIPANTHYL [Suspect]
     Indication: HYPERCHOLESTEROLAEMIA
     Dosage: UNK
     Route: 048
     Dates: start: 20030101, end: 20090314
  5. INDOCIN [Suspect]
     Indication: RHEUMATOID ARTHRITIS
     Dosage: 25 G, UNK
     Route: 048
     Dates: start: 20071101, end: 20090314

REACTIONS (1)
  - PULMONARY EMBOLISM [None]
